FAERS Safety Report 4861544-1 (Version None)
Quarter: 2005Q4

REPORT INFORMATION
  Report Type: 
  Country: None (occurrence: None)
  Receive Date: 20051220
  Receipt Date: 20051213
  Transmission Date: 20060501
  Serious: Yes (Hospitalization)
  Sender: FDA-Public Use
  Company Number: US-BRISTOL-MYERS SQUIBB COMPANY-13214002

PATIENT
  Age: 4 Year
  Sex: Female
  Weight: 36 kg

DRUGS (4)
  1. CYCLOPHOSPHAMIDE [Suspect]
     Route: 042
  2. METHOTREXATE [Suspect]
  3. THIOGUANINE [Suspect]
     Route: 048
  4. CYTARABINE [Suspect]
     Route: 058

REACTIONS (12)
  - ABDOMINAL DISTENSION [None]
  - ABDOMINAL PAIN [None]
  - ALANINE AMINOTRANSFERASE [None]
  - ASCITES [None]
  - ASPARTATE AMINOTRANSFERASE [None]
  - BLOOD BILIRUBIN INCREASED [None]
  - COAGULOPATHY [None]
  - HEPATIC FAILURE [None]
  - HYPOALBUMINAEMIA [None]
  - HYPOKALAEMIA [None]
  - NEUTROPENIA [None]
  - PYREXIA [None]
